FAERS Safety Report 21106472 (Version 1)
Quarter: 2022Q3

REPORT INFORMATION
  Report Type: Spontaneous
  Country: US (occurrence: None)
  Receive Date: 20220720
  Receipt Date: 20220720
  Transmission Date: 20221027
  Serious: Yes (Hospitalization)
  Sender: FDA-Public Use
  Company Number: None

PATIENT
  Sex: Female
  Weight: 35.6 kg

DRUGS (4)
  1. CYTARABINE [Suspect]
     Active Substance: CYTARABINE
     Indication: Product used for unknown indication
     Dates: end: 20220710
  2. ETOPOSIDE [Suspect]
     Active Substance: ETOPOSIDE
     Dates: end: 20220709
  3. HYDROCORTISONE [Suspect]
     Active Substance: HYDROCORTISONE
     Indication: Product used for unknown indication
     Dates: end: 20220621
  4. METHOTREXATE [Suspect]
     Active Substance: METHOTREXATE
     Indication: Product used for unknown indication
     Dates: end: 20220621

REACTIONS (8)
  - Nausea [None]
  - Vomiting [None]
  - Neutrophil count decreased [None]
  - Vancomycin infusion reaction [None]
  - Drug intolerance [None]
  - Colitis [None]
  - Clostridium difficile infection [None]
  - Platelet count decreased [None]

NARRATIVE: CASE EVENT DATE: 20220716
